FAERS Safety Report 13024341 (Version 2)
Quarter: 2016Q4

REPORT INFORMATION
  Report Type: Spontaneous
  Country: US (occurrence: US)
  Receive Date: 20161213
  Receipt Date: 20161226
  Transmission Date: 20170207
  Serious: Yes (Life-Threatening, Hospitalization, Other)
  Sender: FDA-Public Use
  Company Number: US-ALLERGAN-1680034US

PATIENT
  Age: 71 Year
  Sex: Male

DRUGS (1)
  1. ATROPINE SULFATE SOLUTION, 1% [Suspect]
     Active Substance: ATROPINE SULFATE
     Indication: IRIDOCYCLITIS
     Dosage: UNK
     Route: 061
     Dates: start: 201408, end: 201410

REACTIONS (3)
  - Prostatitis [Unknown]
  - Urinary retention [Recovered/Resolved]
  - Urosepsis [Unknown]

NARRATIVE: CASE EVENT DATE: 201409
